FAERS Safety Report 8481015-3 (Version None)
Quarter: 2012Q3

REPORT INFORMATION
  Report Type: 
  Country: None (occurrence: None)
  Receive Date: 20120702
  Receipt Date: 20120621
  Transmission Date: 20120928
  Serious: No
  Sender: FDA-Public Use
  Company Number: US-TEVA-344417USA

PATIENT
  Sex: Female
  Weight: 61.29 kg

DRUGS (8)
  1. CALCIUM CITRATE W/VITAMIN D NOS [Concomitant]
     Indication: SUPPLEMENTATION THERAPY
     Dosage: 1200 MILLIGRAM;
     Route: 048
  2. DIAZEPAM [Concomitant]
     Indication: CEREBRAL PALSY
     Dosage: 20 MILLIGRAM;
     Route: 048
  3. MULTI-VITAMIN [Concomitant]
     Indication: VITAMIN SUPPLEMENTATION
     Route: 048
  4. IBUPROFEN [Concomitant]
     Indication: PAIN
     Dosage: PRN
     Route: 048
  5. VITAMIN D [Concomitant]
     Indication: VITAMIN SUPPLEMENTATION
     Dosage: 5000 IU (INTERNATIONAL UNIT);
     Route: 048
  6. NUVIGIL [Suspect]
     Indication: CEREBRAL PALSY
     Dosage: QAM
     Route: 048
     Dates: start: 20090101
  7. NUVIGIL [Suspect]
     Indication: FATIGUE
  8. IRON [Concomitant]
     Indication: SUPPLEMENTATION THERAPY
     Dosage: 18 MILLIGRAM;
     Route: 048

REACTIONS (3)
  - OFF LABEL USE [None]
  - DRUG EFFECT DECREASED [None]
  - SOMNOLENCE [None]
